FAERS Safety Report 13216200 (Version 1)
Quarter: 2017Q1

REPORT INFORMATION
  Report Type: Spontaneous
  Country: US (occurrence: US)
  Receive Date: 20170209
  Receipt Date: 20170209
  Transmission Date: 20170428
  Serious: Yes (Death, Other)
  Sender: FDA-Public Use
  Company Number: US-JNJFOC-20170205929

PATIENT
  Age: 25 Year
  Sex: Female

DRUGS (2)
  1. LOPERAMIDE HYDROCHLORIDE. [Suspect]
     Active Substance: LOPERAMIDE HYDROCHLORIDE
     Indication: WITHDRAWAL SYNDROME
     Dosage: 30-60 TABLETS AT A TIME FOR 2 YEARS
     Route: 065
  2. LOPERAMIDE HYDROCHLORIDE. [Suspect]
     Active Substance: LOPERAMIDE HYDROCHLORIDE
     Route: 065

REACTIONS (14)
  - Hypotension [Unknown]
  - Electrocardiogram QT prolonged [Unknown]
  - Vomiting [Unknown]
  - Abdominal pain [Unknown]
  - Toxicity to various agents [Fatal]
  - Constipation [Unknown]
  - Ejection fraction decreased [Unknown]
  - Nausea [Unknown]
  - Dizziness [Unknown]
  - Bradycardia [Unknown]
  - Drug abuse [Fatal]
  - Ventricular tachycardia [Unknown]
  - Ventricular hypokinesia [Unknown]
  - Syncope [Unknown]
